FAERS Safety Report 6671794-X (Version None)
Quarter: 2010Q2

REPORT INFORMATION
  Report Type: 
  Country: None (occurrence: None)
  Receive Date: 20100406
  Receipt Date: 20100406
  Transmission Date: 20101027
  Serious: No
  Sender: FDA-Public Use
  Company Number: None

PATIENT
  Sex: Female
  Weight: 47.6277 kg

DRUGS (3)
  1. DYSPORT [Suspect]
     Indication: SKIN WRINKLING
     Dosage: 50 UNITS, 10 UNITS, 12 UNITS, 4  EVERY 2 WEEKS SQ
     Route: 058
     Dates: start: 20091128, end: 20100205
  2. DYSPORT [Suspect]
  3. DYSPORT [Suspect]

REACTIONS (10)
  - ACTIVITIES OF DAILY LIVING IMPAIRED [None]
  - ASTHENIA [None]
  - HEADACHE [None]
  - IMPAIRED WORK ABILITY [None]
  - NYSTAGMUS [None]
  - OVERDOSE [None]
  - SPEECH DISORDER [None]
  - VERTIGO [None]
  - VISUAL IMPAIRMENT [None]
  - WRONG TECHNIQUE IN DRUG USAGE PROCESS [None]
